FAERS Safety Report 8806945 (Version 2)
Quarter: 2014Q3

REPORT INFORMATION
  Report Type: Report from Study
  Country: US (occurrence: US)
  Receive Date: 20120925
  Receipt Date: 20140904
  Transmission Date: 20150326
  Serious: Yes (Other)
  Sender: FDA-Public Use
  Company Number: US-ROCHE-1123006

PATIENT
  Sex: Female
  Weight: 57 kg

DRUGS (5)
  1. AVASTIN [Suspect]
     Active Substance: BEVACIZUMAB
     Indication: RECTOSIGMOID CANCER
     Route: 042
  2. AVASTIN [Suspect]
     Active Substance: BEVACIZUMAB
     Indication: ANAL CANCER
  3. OXALIPLATIN. [Concomitant]
     Active Substance: OXALIPLATIN
  4. 5-FLUOROURACIL [Concomitant]
     Active Substance: FLUOROURACIL
     Route: 065
     Dates: start: 200211
  5. LEUCOVORIN [Concomitant]
     Active Substance: LEUCOVORIN
     Route: 065
     Dates: start: 200211

REACTIONS (3)
  - Metastases to liver [Unknown]
  - Disease progression [Unknown]
  - Metastases to lung [Unknown]
